FAERS Safety Report 13668493 (Version 1)
Quarter: 2017Q2

REPORT INFORMATION
  Report Type: Spontaneous
  Country: US (occurrence: US)
  Receive Date: 20170620
  Receipt Date: 20170620
  Transmission Date: 20170830
  Serious: No
  Sender: FDA-Public Use
  Company Number: US-009507513-1706USA006269

PATIENT

DRUGS (2)
  1. ZOCOR [Suspect]
     Active Substance: SIMVASTATIN
     Route: 048
  2. MEVACOR [Suspect]
     Active Substance: LOVASTATIN
     Route: 048

REACTIONS (1)
  - Drug hypersensitivity [Unknown]
